FAERS Safety Report 17683318 (Version 2)
Quarter: 2020Q2

REPORT INFORMATION
  Report Type: Spontaneous
  Country: US (occurrence: US)
  Receive Date: 20200420
  Receipt Date: 20200518
  Transmission Date: 20200714
  Serious: No
  Sender: FDA-Public Use
  Company Number: US-ASTRAZENECA-2020SE47003

PATIENT
  Age: 28152 Day
  Sex: Female
  Weight: 73.5 kg

DRUGS (3)
  1. PULMICORT FLEXHALER [Suspect]
     Active Substance: BUDESONIDE
     Indication: BRONCHIAL SECRETION RETENTION
     Dosage: 90 MCG. TWO PUFFS IN THE MORNING AND TWO PUFFS IN THE EVENING
     Route: 055
     Dates: start: 2019
  2. PULMICORT FLEXHALER [Suspect]
     Active Substance: BUDESONIDE
     Indication: PULMONARY MASS
     Dosage: 90 MCG. TWO PUFFS IN THE MORNING AND TWO PUFFS IN THE EVENING
     Route: 055
     Dates: start: 2019
  3. PULMICORT FLEXHALER [Suspect]
     Active Substance: BUDESONIDE
     Indication: ASTHMA
     Dosage: 90 MCG. TWO PUFFS IN THE MORNING AND TWO PUFFS IN THE EVENING
     Route: 055
     Dates: start: 2019

REACTIONS (6)
  - Bronchitis [Unknown]
  - Tongue discomfort [Recovering/Resolving]
  - Incorrect dose administered by device [Unknown]
  - Product dose omission [Unknown]
  - Throat irritation [Recovering/Resolving]
  - Device issue [Unknown]

NARRATIVE: CASE EVENT DATE: 20200401
